FAERS Safety Report 17719021 (Version 2)
Quarter: 2020Q4

REPORT INFORMATION
  Report Type: Report from Study
  Country: US (occurrence: US)
  Receive Date: 20200428
  Receipt Date: 20201011
  Transmission Date: 20210113
  Serious: Yes (Other)
  Sender: FDA-Public Use
  Company Number: US-UCBSA-2020017513

PATIENT
  Age: 46 Year
  Sex: Female
  Weight: 107 kg

DRUGS (3)
  1. CERTOLIZUMAB PEGOL [Suspect]
     Active Substance: CERTOLIZUMAB PEGOL
     Indication: OFF LABEL USE
  2. CERTOLIZUMAB PEGOL [Suspect]
     Active Substance: CERTOLIZUMAB PEGOL
     Indication: SWELLING
  3. CERTOLIZUMAB PEGOL [Suspect]
     Active Substance: CERTOLIZUMAB PEGOL
     Indication: UVEITIS
     Dosage: 400 MILLIGRAM, EV 4 WEEKS
     Dates: start: 201903

REACTIONS (2)
  - Off label use [Unknown]
  - Sinus operation [Unknown]

NARRATIVE: CASE EVENT DATE: 201903
